FAERS Safety Report 5476242-3 (Version None)
Quarter: 2007Q4

REPORT INFORMATION
  Report Type: 
  Country: None (occurrence: None)
  Receive Date: 20071003
  Receipt Date: 20070906
  Transmission Date: 20080405
  Serious: Yes (Hospitalization)
  Sender: FDA-Public Use
  Company Number: JP-PFIZER INC-2007077337

PATIENT
  Age: 76 Year
  Sex: Female

DRUGS (3)
  1. MIGLITOL TABLET [Suspect]
     Indication: DIABETES MELLITUS
     Route: 048
     Dates: start: 20070607, end: 20070621
  2. ASPIRIN [Concomitant]
     Route: 048
  3. INSULIN [Concomitant]
     Indication: DIABETES MELLITUS
     Dosage: TEXT:40 IU, 10 IU
     Route: 058

REACTIONS (7)
  - ABDOMINAL DISTENSION [None]
  - ALANINE AMINOTRANSFERASE INCREASED [None]
  - ANOREXIA [None]
  - ASPARTATE AMINOTRANSFERASE INCREASED [None]
  - FLATULENCE [None]
  - HEPATIC ENZYME INCREASED [None]
  - NAUSEA [None]
